FAERS Safety Report 17136572 (Version 1)
Quarter: 2019Q4

REPORT INFORMATION
  Report Type: Report from Study
  Country: US (occurrence: US)
  Receive Date: 20191210
  Receipt Date: 20191210
  Transmission Date: 20200122
  Serious: Yes (Hospitalization, Other)
  Sender: FDA-Public Use
  Company Number: US-GILEAD-2019-0441827

PATIENT
  Age: 32 Year
  Sex: Female

DRUGS (13)
  1. LANTUS [Concomitant]
     Active Substance: INSULIN GLARGINE
  2. HYPERSAL [Concomitant]
     Active Substance: SODIUM CHLORIDE
  3. PANTOPRAZOLE [Concomitant]
     Active Substance: PANTOPRAZOLE
  4. VENTOLIN [Concomitant]
     Active Substance: ALBUTEROL SULFATE
  5. NOVOLOG [Concomitant]
     Active Substance: INSULIN ASPART
  6. DULERA [Concomitant]
     Active Substance: FORMOTEROL FUMARATE DIHYDRATE\MOMETASONE FUROATE
  7. PULMOZYME [Suspect]
     Active Substance: DORNASE ALFA
     Indication: CYSTIC FIBROSIS
     Dosage: 2.5 MG, BID
     Route: 055
     Dates: start: 20150822
  8. ALBUTEROL [SALBUTAMOL] [Concomitant]
     Active Substance: ALBUTEROL
  9. AZITHROMYCIN ANHYDROUS. [Concomitant]
     Active Substance: AZITHROMYCIN ANHYDROUS
  10. BUDESONIDE. [Concomitant]
     Active Substance: BUDESONIDE
  11. SPIRIVA [Concomitant]
     Active Substance: TIOTROPIUM BROMIDE MONOHYDRATE
  12. CREON [Suspect]
     Active Substance: PANCRELIPASE AMYLASE\PANCRELIPASE LIPASE\PANCRELIPASE PROTEASE
     Indication: CYSTIC FIBROSIS
     Dosage: 5 DOSAGE FORM, Q4HR. 24,000 UNITS
     Route: 065
     Dates: start: 20190919
  13. AZTREONAM LYSINE [Suspect]
     Active Substance: AZTREONAM LYSINE
     Indication: CYSTIC FIBROSIS
     Dosage: 75 MG, TID, 28 DAYS OFF AND 28 DAYS
     Route: 055
     Dates: start: 20151208

REACTIONS (2)
  - Cystic fibrosis [Unknown]
  - Pneumonia [Unknown]

NARRATIVE: CASE EVENT DATE: 20191206
